FAERS Safety Report 10249765 (Version 2)
Quarter: 2014Q2

REPORT INFORMATION
  Report Type: Report from Study
  Country: US (occurrence: US)
  Receive Date: 20140620
  Receipt Date: 20140620
  Transmission Date: 20141212
  Serious: Yes (Hospitalization, Other)
  Sender: FDA-Public Use
  Company Number: PHEH2014US012111

PATIENT
  Age: 41 Year
  Sex: Female

DRUGS (5)
  1. GILENYA [Suspect]
     Indication: MULTIPLE SCLEROSIS
     Dosage: 0.5 MG, QD
     Route: 048
     Dates: start: 20140612, end: 20140614
  2. LISINOPRIL [Suspect]
  3. TOPAMAX [Suspect]
     Indication: MIGRAINE
  4. LYRICA [Suspect]
     Indication: MIGRAINE
  5. MAXALT [Suspect]
     Indication: MIGRAINE

REACTIONS (5)
  - Hypersensitivity [Unknown]
  - Hypoaesthesia [Unknown]
  - Chest discomfort [Unknown]
  - Migraine [Unknown]
  - Paraesthesia [Not Recovered/Not Resolved]
